FAERS Safety Report 13356682 (Version 5)
Quarter: 2019Q3

REPORT INFORMATION
  Report Type: Spontaneous
  Country: JP (occurrence: JP)
  Receive Date: 20170321
  Receipt Date: 20190830
  Transmission Date: 20191004
  Serious: Yes (Hospitalization, Other)
  Sender: FDA-Public Use
  Company Number: JP-PFM-2017-01970

PATIENT

DRUGS (7)
  1. HEMANGIOL [Suspect]
     Active Substance: PROPRANOLOL HYDROCHLORIDE
     Dosage: 3 ML DAILY
     Route: 048
     Dates: start: 20170208, end: 20170321
  2. HEMANGIOL [Suspect]
     Active Substance: PROPRANOLOL HYDROCHLORIDE
     Dosage: 3.6 ML DAILY
     Route: 048
     Dates: start: 20170705
  3. HEMANGIOL [Suspect]
     Active Substance: PROPRANOLOL HYDROCHLORIDE
     Indication: INFANTILE HAEMANGIOMA
     Dosage: 0.5 MG/KG, QD (1/DAY), 0.7 ML
     Route: 048
     Dates: start: 20170111, end: 20170112
  4. HEMANGIOL [Suspect]
     Active Substance: PROPRANOLOL HYDROCHLORIDE
     Dosage: 1 MG/KG, QD (1/DAY), 1.4 ML
     Route: 048
     Dates: start: 20170113, end: 20170117
  5. HEMANGIOL [Suspect]
     Active Substance: PROPRANOLOL HYDROCHLORIDE
     Dosage: 1.5 MG/KG, QD (1/DAY), 2.1 ML
     Route: 048
     Dates: start: 20170115, end: 20170116
  6. HEMANGIOL [Suspect]
     Active Substance: PROPRANOLOL HYDROCHLORIDE
     Dosage: 2 MG/KG, QD (1/DAY), 2.8 ML
     Route: 048
     Dates: start: 20170117, end: 20170207
  7. HEMANGIOL [Suspect]
     Active Substance: PROPRANOLOL HYDROCHLORIDE
     Dosage: 3.2 ML DAILY
     Route: 048
     Dates: start: 20170322, end: 20170704

REACTIONS (4)
  - Infected skin ulcer [Recovered/Resolved]
  - Platelet count increased [Recovering/Resolving]
  - Drug titration error [Unknown]
  - Off label use [Unknown]

NARRATIVE: CASE EVENT DATE: 20170116
